FAERS Safety Report 5765233-0 (Version None)
Quarter: 2008Q2

REPORT INFORMATION
  Report Type: 
  Country: None (occurrence: None)
  Receive Date: 20080609
  Receipt Date: 20080609
  Transmission Date: 20081010
  Serious: No
  Sender: FDA-Public Use
  Company Number: None

PATIENT
  Age: 17 Year
  Sex: Female
  Weight: 63.5036 kg

DRUGS (2)
  1. CEFDINIR 300MG CAP CITY MARKETY FOOD AND PHARMACY [Suspect]
     Indication: SINUSITIS
     Dosage: ONE CAPSIL TWICE DAILY PO
     Route: 048
     Dates: start: 20080527, end: 20080607
  2. AUGMENTIN [Suspect]
     Indication: SINUSITIS
     Dosage: ONE CAPSIL TWICE DAILY PO
     Route: 048
     Dates: start: 20080506, end: 20080516

REACTIONS (1)
  - DRUG SCREEN POSITIVE [None]
